FAERS Safety Report 18931795 (Version 1)
Quarter: 2021Q1

REPORT INFORMATION
  Report Type: Spontaneous
  Country: US (occurrence: US)
  Receive Date: 20210223
  Receipt Date: 20210223
  Transmission Date: 20210420
  Serious: No
  Sender: FDA-Public Use
  Company Number: US-IGSA-BIG0011621

PATIENT
  Age: 46 Year
  Sex: Male
  Weight: 80.7 kg

DRUGS (7)
  1. PROLASTIN?C LIQUID [Suspect]
     Active Substance: .ALPHA.1-PROTEINASE INHIBITOR HUMAN
     Dosage: 60 MILLIGRAM, Q.WK.
     Route: 042
     Dates: start: 20201006, end: 20201006
  2. ALBUTEROL                          /00139501/ [Concomitant]
     Active Substance: ALBUTEROL
  3. PROLASTIN?C LIQUID [Suspect]
     Active Substance: .ALPHA.1-PROTEINASE INHIBITOR HUMAN
     Indication: ALPHA-1 ANTITRYPSIN DEFICIENCY
     Dosage: 60 MILLIGRAM/KILOGRAM, Q.WK.
     Route: 042
     Dates: start: 20181017
  4. SYMBICORT [Concomitant]
     Active Substance: BUDESONIDE\FORMOTEROL FUMARATE DIHYDRATE
  5. PREDNISONE. [Concomitant]
     Active Substance: PREDNISONE
  6. VENTOLIN [Concomitant]
     Active Substance: ALBUTEROL SULFATE
  7. PROVENTIL [Concomitant]
     Active Substance: ALBUTEROL

REACTIONS (5)
  - Tremor [Recovering/Resolving]
  - Vomiting [Recovering/Resolving]
  - Body temperature increased [Recovering/Resolving]
  - Pain [Recovering/Resolving]
  - Feeling abnormal [Recovering/Resolving]

NARRATIVE: CASE EVENT DATE: 20201006
